FAERS Safety Report 18315391 (Version 1)
Quarter: 2020Q3

REPORT INFORMATION
  Report Type: Spontaneous
  Country: US (occurrence: US)
  Receive Date: 20200926
  Receipt Date: 20200926
  Transmission Date: 20201103
  Serious: No
  Sender: FDA-Public Use
  Company Number: US-SA-2020SA261360

PATIENT

DRUGS (1)
  1. DUPIXENT [Suspect]
     Active Substance: DUPILUMAB
     Indication: ASTHMA
     Dosage: 300 MG, QOW
     Route: 058
     Dates: start: 20200720, end: 20200831

REACTIONS (6)
  - Arthralgia [Recovering/Resolving]
  - Emergency care [Recovering/Resolving]
  - Fatigue [Recovering/Resolving]
  - Mobility decreased [Recovering/Resolving]
  - White blood cell count increased [Recovering/Resolving]
  - Unevaluable event [Recovering/Resolving]

NARRATIVE: CASE EVENT DATE: 2020
